FAERS Safety Report 8496678-6 (Version None)
Quarter: 2012Q2

REPORT INFORMATION
  Report Type: 
  Country: None (occurrence: None)
  Receive Date: 20120629
  Receipt Date: 20120615
  Transmission Date: 20120825
  Serious: Yes (Hospitalization)
  Sender: FDA-Public Use
  Company Number: TCI2011A06871

PATIENT
  Age: 75 Year
  Sex: Male

DRUGS (5)
  1. PIOGLITAZONE HYDROCHLORIDE/METFORMIN HYDROCHLORIDE [Suspect]
     Indication: TYPE 2 DIABETES MELLITUS
     Dosage: 1 TAB. (1 TAB., 1 IN 1 D) PER ORAL
     Route: 048
     Dates: start: 20110111, end: 20111220
  2. ACTOS [Suspect]
     Indication: TYPE 2 DIABETES MELLITUS
     Dosage: 15 MG (15 MG, 1 IN 1 D) PER ORAL,  30 MG (30 MG, 1 IN 1 D) PER ORAL
     Route: 048
     Dates: start: 20050826, end: 20110110
  3. ACTOS [Suspect]
     Indication: TYPE 2 DIABETES MELLITUS
     Dosage: 15 MG (15 MG, 1 IN 1 D) PER ORAL,  30 MG (30 MG, 1 IN 1 D) PER ORAL
     Route: 048
     Dates: start: 20050722, end: 20050825
  4. BEZAFIBRATE SR (BEZAFIBRATE) [Concomitant]
  5. CARVEDILOL [Concomitant]

REACTIONS (2)
  - URINE CYTOLOGY ABNORMAL [None]
  - BLADDER TRANSITIONAL CELL CARCINOMA [None]
